FAERS Safety Report 4629597-3 (Version None)
Quarter: 2005Q1

REPORT INFORMATION
  Report Type: 
  Country: None (occurrence: None)
  Receive Date: 20050330
  Receipt Date: 20050317
  Transmission Date: 20050727
  Serious: Yes (Hospitalization)
  Sender: FDA-Public Use
  Company Number: 2005-00337

PATIENT
  Age: 71 Year
  Sex: Male

DRUGS (4)
  1. IMMUCYST (BCG - IT (CONNAUGHT)), AVENTIS PASTEUR LTD. [Suspect]
     Indication: BLADDER CANCER
     Dosage: 81.0 MG I.VES., BLADDER
     Dates: start: 20041215, end: 20050128
  2. LOSARTAN POTASSIUM [Concomitant]
  3. FAMOTIDINE [Concomitant]
  4. PREDNISOLONE [Concomitant]

REACTIONS (2)
  - HYPOXIA [None]
  - INTERSTITIAL LUNG DISEASE [None]
